FAERS Safety Report 26097538 (Version 1)
Quarter: 2025Q4

REPORT INFORMATION
  Report Type: Report from Study
  Country: BR (occurrence: None)
  Receive Date: 20251127
  Receipt Date: 20251127
  Transmission Date: 20260118
  Serious: Yes (Other)
  Sender: UCB
  Company Number: BR-UCBSA-2025074841

PATIENT
  Age: 81 Year
  Weight: 50 kg

DRUGS (1)
  1. CERTOLIZUMAB PEGOL [Suspect]
     Active Substance: CERTOLIZUMAB PEGOL
     Indication: Rheumatoid arthritis
     Dosage: 200 MILLIGRAM, EV 30 DAYS

REACTIONS (4)
  - Eye operation [Unknown]
  - Retinal detachment [Unknown]
  - Intentional product misuse [Unknown]
  - Off label use [Unknown]
